FAERS Safety Report 18668835 (Version 1)
Quarter: 2020Q4

REPORT INFORMATION
  Report Type: Spontaneous
  Country: US (occurrence: US)
  Receive Date: 20201223
  Receipt Date: 20201223
  Transmission Date: 20210114
  Serious: Yes (Death)
  Sender: FDA-Public Use
  Company Number: None

PATIENT
  Age: 79 Year
  Sex: Male

DRUGS (1)
  1. REVLIMID [Suspect]
     Active Substance: LENALIDOMIDE
     Indication: PLASMA CELL MYELOMA
     Route: 048
     Dates: start: 20200204, end: 20201122

REACTIONS (7)
  - Enterococcus test positive [None]
  - Asthenia [None]
  - Tachypnoea [None]
  - Dyspnoea [None]
  - Tachycardia [None]
  - Hypoxia [None]
  - Staphylococcus test positive [None]

NARRATIVE: CASE EVENT DATE: 20201205
